FAERS Safety Report 5835358-X (Version None)
Quarter: 2008Q3

REPORT INFORMATION
  Report Type: 
  Country: None (occurrence: None)
  Receive Date: 20080731
  Receipt Date: 20080724
  Transmission Date: 20090109
  Serious: Yes (Other)
  Sender: FDA-Public Use
  Company Number: CHPA2008US12538

PATIENT
  Age: 47 Year
  Sex: Male

DRUGS (1)
  1. THERAFLU DAYTIME SEVERE COLD WARMING SYRUP (NCH)(PARACETAMOL, DEXTROME [Suspect]
     Indication: NASOPHARYNGITIS
     Dosage: ORAL
     Route: 048

REACTIONS (1)
  - DIABETES MELLITUS [None]
